FAERS Safety Report 26212672 (Version 1)
Quarter: 2025Q4

REPORT INFORMATION
  Report Type: Spontaneous
  Country: US (occurrence: US)
  Receive Date: 20251230
  Receipt Date: 20251230
  Transmission Date: 20260118
  Serious: No
  Sender: BAYER HEALTHCARE LLC
  Company Number: US-BAYER-2025A169210

PATIENT
  Age: 70 Year
  Sex: Male

DRUGS (6)
  1. ASTEPRO [Suspect]
     Active Substance: AZELASTINE HYDROCHLORIDE
     Indication: Hypersensitivity
     Dosage: 1 PUFF(S), BID,SQUIRT IN EACH NOSTRIL IN THE MORNING AND AGAIN AT NIGHT
     Route: 045
     Dates: start: 20251215, end: 20251220
  2. ASTEPRO [Suspect]
     Active Substance: AZELASTINE HYDROCHLORIDE
     Indication: Nasopharyngitis
  3. ASTEPRO ALLERGY [Suspect]
     Active Substance: AZELASTINE HYDROCHLORIDE
     Indication: Hypersensitivity
     Dosage: 1 PUFF(S), BID,ONE SQUIRT IN EACH NOSTRIL IN THE MORNING AND AGAIN AT NIGHT
     Route: 045
     Dates: start: 20251215, end: 20251220
  4. ASTEPRO ALLERGY [Suspect]
     Active Substance: AZELASTINE HYDROCHLORIDE
     Indication: Nasopharyngitis
  5. SAFEWAY [Concomitant]
     Indication: Hypersensitivity
     Dosage: 1 PUFF(S), BID,SAME AS THE ONE I USED WITH ASTEPRO
     Route: 055
     Dates: start: 20251221
  6. SAFEWAY [Concomitant]
     Indication: Nasopharyngitis

REACTIONS (2)
  - Rebound effect [Recovered/Resolved]
  - Drug ineffective [Recovered/Resolved]

NARRATIVE: CASE EVENT DATE: 20251215
